FAERS Safety Report 5039830-4 (Version None)
Quarter: 2006Q2

REPORT INFORMATION
  Report Type: 
  Country: None (occurrence: None)
  Receive Date: 20060626
  Receipt Date: 20060613
  Transmission Date: 20061013
  Serious: Yes (Hospitalization)
  Sender: FDA-Public Use
  Company Number: T06-USA-01962-01

PATIENT
  Age: 86 Year
  Sex: Female
  Weight: 58.9676 kg

DRUGS (2)
  1. MEMANTINE HCL [Suspect]
     Indication: DEMENTIA ALZHEIMER'S TYPE
     Dosage: 28 MG QD PO
     Route: 048
     Dates: start: 20051122, end: 20060302
  2. IMODIUM [Concomitant]

REACTIONS (16)
  - BLOOD CALCIUM DECREASED [None]
  - BLOOD CHLORIDE INCREASED [None]
  - BLOOD GLUCOSE INCREASED [None]
  - BLOOD POTASSIUM DECREASED [None]
  - BLOOD SODIUM INCREASED [None]
  - BLOOD UREA INCREASED [None]
  - CSF WHITE BLOOD CELL COUNT INCREASED [None]
  - DIVERTICULITIS INTESTINAL HAEMORRHAGIC [None]
  - LEUKOCYTOSIS [None]
  - LYMPHOCYTE COUNT INCREASED [None]
  - MONOCYTE COUNT INCREASED [None]
  - NEUTROPHIL COUNT INCREASED [None]
  - NORMOCHROMIC NORMOCYTIC ANAEMIA [None]
  - PROTEIN TOTAL DECREASED [None]
  - RECTAL HAEMORRHAGE [None]
  - SPINAL COMPRESSION FRACTURE [None]
